FAERS Safety Report 10944179 (Version 1)
Quarter: 2015Q1

REPORT INFORMATION
  Report Type: Spontaneous
  Country: US (occurrence: US)
  Receive Date: 20150323
  Receipt Date: 20150323
  Transmission Date: 20150721
  Serious: Yes (Other)
  Sender: FDA-Public Use
  Company Number: US-BAUSCH-BL-2015-009364

PATIENT
  Sex: Female

DRUGS (1)
  1. XENAZINE [Suspect]
     Active Substance: TETRABENAZINE
     Indication: TARDIVE DYSKINESIA
     Dosage: TWO TABLETS IN THE MORNING, ONE TABLET AT NOON, TWO TABLETS IN THE EVENING, AND MAY TAKE ONE TABLET
     Route: 048

REACTIONS (11)
  - Drug dose omission [Unknown]
  - Hypoaesthesia [Unknown]
  - Cerebrovascular accident [Unknown]
  - Prescribed overdose [Unknown]
  - Product use issue [Unknown]
  - Paraesthesia [Unknown]
  - Balance disorder [Unknown]
  - Dysarthria [Unknown]
  - Pain [Unknown]
  - Memory impairment [Unknown]
  - Gait disturbance [Unknown]

NARRATIVE: CASE EVENT DATE: 2015
